FAERS Safety Report 7519156-7 (Version None)
Quarter: 2011Q2

REPORT INFORMATION
  Report Type: 
  Country: None (occurrence: None)
  Receive Date: 20110602
  Receipt Date: 20110524
  Transmission Date: 20111010
  Serious: Yes (Hospitalization)
  Sender: FDA-Public Use
  Company Number: GB-ROCHE-779097

PATIENT
  Age: 64 Year
  Sex: Male
  Weight: 74 kg

DRUGS (4)
  1. PRAVASTATIN SODIUM [Concomitant]
  2. TAMIFLU [Suspect]
     Indication: ILL-DEFINED DISORDER
     Route: 048
     Dates: start: 20090722, end: 20090724
  3. MIXTARD HUMAN 70/30 [Concomitant]
  4. RAMIPRIL [Concomitant]

REACTIONS (4)
  - RENAL IMPAIRMENT [None]
  - LIVER FUNCTION TEST ABNORMAL [None]
  - VASCULITIC RASH [None]
  - HAEMOLYSIS [None]
